FAERS Safety Report 5850049-7 (Version None)
Quarter: 2008Q3

REPORT INFORMATION
  Report Type: 
  Country: None (occurrence: None)
  Receive Date: 20080731
  Receipt Date: 20080407
  Transmission Date: 20090109
  Serious: No
  Sender: FDA-Public Use
  Company Number: US200804001886

PATIENT
  Age: 54 Year
  Sex: Male
  Weight: 122.9 kg

DRUGS (5)
  1. BYETTA [Suspect]
     Indication: TYPE 2 DIABETES MELLITUS
     Dosage: 5 UG, 2/D, SUBCUTANEOUS
     Route: 058
     Dates: start: 20080405
  2. GLIMEPIRIDE [Concomitant]
  3. GLUCOPHAGE/USA/(METFORMIN HYDROCHLORIDE) [Concomitant]
  4. ACTOS/USA/(PIOGLITAZONE HYDROCHLORIDE) [Concomitant]
  5. DRUG USED IN DIABETES [Concomitant]

REACTIONS (2)
  - BLOOD GLUCOSE INCREASED [None]
  - DRUG INEFFECTIVE [None]
